FAERS Safety Report 5524748-0 (Version None)
Quarter: 2007Q4

REPORT INFORMATION
  Report Type: 
  Country: None (occurrence: None)
  Receive Date: 20071123
  Receipt Date: 20071116
  Transmission Date: 20080405
  Serious: Yes (Other)
  Sender: FDA-Public Use
  Company Number: PHBS2007JP14977

PATIENT
  Age: 58 Year
  Sex: Female
  Weight: 63 kg

DRUGS (6)
  1. ZOMETA [Suspect]
     Indication: METASTASES TO BONE
     Dosage: 4 MG, UNK
     Route: 042
     Dates: start: 20061020, end: 20070807
  2. NOLVADEX [Concomitant]
     Indication: BREAST CANCER
     Dosage: 1 DF, UNK
     Route: 048
     Dates: start: 19990831, end: 20000502
  3. ZOLADEX [Concomitant]
     Indication: BREAST CANCER
     Dosage: 3.6 MG, UNK
     Route: 042
     Dates: start: 20000530, end: 20001017
  4. FLUOROURACIL [Concomitant]
     Indication: BREAST CANCER
     Dosage: 400 MG, UNK
     Route: 048
     Dates: start: 19990831, end: 19991109
  5. UFT [Concomitant]
     Indication: BREAST CANCER
     Dosage: 300 MG, UNK
     Route: 048
     Dates: start: 19991130, end: 20020130
  6. ARIMIDEX [Concomitant]
     Indication: BREAST CANCER
     Dosage: 1 MG, UNK
     Route: 048
     Dates: start: 20060922

REACTIONS (5)
  - GINGIVAL DISCOLOURATION [None]
  - GINGIVAL PAIN [None]
  - ORAL SURGERY [None]
  - OSTEOMYELITIS [None]
  - TOOTH EXTRACTION [None]
